FAERS Safety Report 4760450-0 (Version None)
Quarter: 2005Q3

REPORT INFORMATION
  Report Type: 
  Country: None (occurrence: None)
  Receive Date: 20050902
  Receipt Date: 20050822
  Transmission Date: 20060218
  Serious: Yes (Life-Threatening)
  Sender: FDA-Public Use
  Company Number: FR-BRISTOL-MYERS SQUIBB COMPANY-13087283

PATIENT
  Age: 41 Year
  Sex: Male

DRUGS (2)
  1. FUNGIZONE [Suspect]
     Route: 048
  2. KETEK [Suspect]
     Route: 048

REACTIONS (3)
  - ANAPHYLACTIC SHOCK [None]
  - PRURITUS [None]
  - RASH ERYTHEMATOUS [None]
